FAERS Safety Report 20849395 (Version 2)
Quarter: 2022Q4

REPORT INFORMATION
  Report Type: Spontaneous
  Country: US (occurrence: US)
  Receive Date: 20220519
  Receipt Date: 20221006
  Transmission Date: 20230113
  Serious: No
  Sender: FDA-Public Use
  Company Number: US-PFIZER INC-202200711268

PATIENT
  Age: 88 Year
  Sex: Male
  Weight: 81.65 kg

DRUGS (1)
  1. IBRANCE [Suspect]
     Active Substance: PALBOCICLIB
     Indication: Breast cancer metastatic
     Dosage: 100 MG, CYCLIC(100MG; 21DAYS ON AND 7 DAYS OFF)
     Dates: start: 2021

REACTIONS (13)
  - Heart rate decreased [Unknown]
  - Cardiac disorder [Unknown]
  - Tooth infection [Unknown]
  - Back pain [Unknown]
  - Dehydration [Not Recovered/Not Resolved]
  - Fluid retention [Not Recovered/Not Resolved]
  - Dyspnoea [Unknown]
  - Dizziness [Unknown]
  - Gait inability [Unknown]
  - Feeling abnormal [Unknown]
  - Confusional state [Unknown]
  - Body height decreased [Unknown]
  - Neoplasm progression [Unknown]

NARRATIVE: CASE EVENT DATE: 20220101
